FAERS Safety Report 6769659-8 (Version None)
Quarter: 2010Q2

REPORT INFORMATION
  Report Type: 
  Country: None (occurrence: None)
  Receive Date: 20100615
  Receipt Date: 20100608
  Transmission Date: 20101027
  Serious: Yes (Hospitalization)
  Sender: FDA-Public Use
  Company Number: DE-B.I. PHARMACEUTICALS,INC./RIDGEFIELD-2009-DE-02747DE

PATIENT
  Age: 84 Year
  Sex: Female
  Weight: 70 kg

DRUGS (7)
  1. AGGRENOX [Suspect]
     Indication: THROMBOSIS PROPHYLAXIS
     Dosage: 2 ANZ
     Route: 048
     Dates: start: 20060501, end: 20080805
  2. ENABETA COMP [Suspect]
     Indication: HYPERTENSION
     Dosage: 1 ANZ
     Route: 048
     Dates: start: 20060501, end: 20080805
  3. IBUPROFEN [Suspect]
     Indication: OSTEOARTHRITIS
     Dosage: 1200 MG
     Route: 048
     Dates: start: 20080601, end: 20080805
  4. INDOMETHACIN SODIUM [Suspect]
     Indication: OSTEOARTHRITIS
     Dosage: 100 MG
     Route: 048
     Dates: start: 20080601, end: 20080701
  5. FELOCOR [Concomitant]
     Indication: HYPERTENSION
     Dosage: 5 MG
     Route: 048
     Dates: start: 20000101
  6. LEVOTHYROXINE SODIUM [Concomitant]
     Indication: HYPOTHYROIDISM
     Dosage: 50 MCG
     Route: 048
     Dates: start: 19780101
  7. METOCLOPRAMIDE [Concomitant]
     Indication: NAUSEA
     Dosage: 36 MG
     Route: 048
     Dates: start: 20080701, end: 20080808

REACTIONS (13)
  - AORTIC ARTERIOSCLEROSIS [None]
  - DEHYDRATION [None]
  - GASTRITIS EROSIVE [None]
  - GROIN PAIN [None]
  - HEADACHE [None]
  - HYPOKALAEMIA [None]
  - HYPONATRAEMIA [None]
  - LIVER INJURY [None]
  - NAUSEA [None]
  - OCCULT BLOOD POSITIVE [None]
  - RENAL DISORDER [None]
  - URINARY TRACT INFECTION [None]
  - VOMITING [None]
